FAERS Safety Report 4911117-7 (Version None)
Quarter: 2006Q1

REPORT INFORMATION
  Report Type: 
  Country: None (occurrence: None)
  Receive Date: 20060209
  Receipt Date: 20060124
  Transmission Date: 20060701
  Serious: Yes (Hospitalization)
  Sender: FDA-Public Use
  Company Number: 2006PL000005

PATIENT
  Age: 72 Year
  Sex: Male

DRUGS (2)
  1. AZATHIOPRINE [Suspect]
     Indication: RHEUMATOID ARTHRITIS
     Dosage: PO
     Route: 048
  2. PREDNISOLONE [Suspect]
     Indication: RHEUMATOID ARTHRITIS
     Dosage: PO
     Route: 048

REACTIONS (4)
  - ADENOCARCINOMA [None]
  - PAGET'S DISEASE OF SKIN [None]
  - RENAL CELL CARCINOMA STAGE UNSPECIFIED [None]
  - SWEAT GLAND DISORDER [None]
